FAERS Safety Report 16268371 (Version 1)
Quarter: 2019Q2

REPORT INFORMATION
  Report Type: Spontaneous
  Country: US (occurrence: US)
  Receive Date: 20190503
  Receipt Date: 20190503
  Transmission Date: 20190711
  Serious: Yes (Other)
  Sender: FDA-Public Use
  Company Number: US-ADIENNEP-2019AD000188

PATIENT
  Age: 61 Year
  Sex: Male

DRUGS (3)
  1. THIOTEPA. [Suspect]
     Active Substance: THIOTEPA
     Indication: CARDIAC TAMPONADE
  2. DABRAFENIB [Suspect]
     Active Substance: DABRAFENIB
  3. TRAMETINIB [Suspect]
     Active Substance: TRAMETINIB

REACTIONS (1)
  - Atrial fibrillation [Unknown]
